FAERS Safety Report 10416219 (Version 3)
Quarter: 2015Q1

REPORT INFORMATION
  Report Type: Spontaneous
  Country: FR (occurrence: FR)
  Receive Date: 20140828
  Receipt Date: 20150326
  Transmission Date: 20150720
  Serious: Yes (Other)
  Sender: FDA-Public Use
  Company Number: FR-PFIZER INC-2014238658

PATIENT
  Age: 85 Year
  Sex: Male

DRUGS (28)
  1. KARDEGIC [Suspect]
     Active Substance: ASPIRIN LYSINE
     Dosage: UNK
     Route: 048
     Dates: start: 20140629
  2. FUROSEMIDE. [Concomitant]
     Active Substance: FUROSEMIDE
     Dosage: UNK
  3. LOXEN [Concomitant]
     Active Substance: NICARDIPINE HYDROCHLORIDE
     Dosage: UNK
     Dates: start: 20140615, end: 20140617
  4. CERNEVIT [Concomitant]
     Active Substance: VITAMINS
     Dosage: UNK
     Dates: start: 20140615, end: 20140622
  5. DIFFU K [Concomitant]
     Active Substance: POTASSIUM CHLORIDE
     Dosage: UNK
     Dates: start: 20140708
  6. ZOPHREN [Suspect]
     Active Substance: ONDANSETRON
     Dosage: UNK
     Route: 065
     Dates: start: 20140714, end: 20140714
  7. TIORFAN [Suspect]
     Active Substance: RACECADOTRIL
     Dosage: UNK
     Route: 048
     Dates: start: 20140702, end: 20140707
  8. MANIDIPINE [Concomitant]
     Active Substance: MANIDIPINE
     Dosage: UNK
  9. HEPARIN [Concomitant]
     Active Substance: HEPARIN SODIUM
     Dosage: UNK
     Dates: start: 20140615, end: 20140618
  10. SACCHAROMYCES [Concomitant]
     Active Substance: SACCHAROMYCES CEREVISIAE
     Dosage: UNK
     Dates: start: 20140702
  11. EUPANTOL [Suspect]
     Active Substance: PANTOPRAZOLE SODIUM
     Dosage: UNK
     Route: 048
     Dates: start: 20140615
  12. HALDOL [Suspect]
     Active Substance: HALOPERIDOL
     Dosage: UNK
     Route: 048
     Dates: start: 20140620
  13. AERIUS [Concomitant]
     Active Substance: DESLORATADINE
     Dosage: UNK
     Dates: start: 20140706
  14. DECAN /00016001/ [Concomitant]
     Dosage: UNK
     Dates: start: 20140615, end: 20140622
  15. CALCIPARINE [Suspect]
     Active Substance: HEPARIN CALCIUM
     Dosage: UNK
     Route: 065
     Dates: start: 20140618
  16. TAZOCILLINE [Concomitant]
     Active Substance: PIPERACILLIN SODIUM\TAZOBACTAM SODIUM
     Dosage: UNK
     Dates: start: 20140629, end: 20140703
  17. AMIKLIN [Concomitant]
     Active Substance: AMIKACIN SULFATE
     Dosage: UNK
     Dates: start: 20140629, end: 20140703
  18. VALIUM [Suspect]
     Active Substance: DIAZEPAM
     Dosage: UNK
     Route: 048
     Dates: start: 20140618
  19. ATARAX [Suspect]
     Active Substance: HYDROXYZINE\HYDROXYZINE HYDROCHLORIDE
     Dosage: UNK
     Route: 048
     Dates: start: 20140619
  20. MORPHINE [Concomitant]
     Active Substance: MORPHINE
     Dosage: UNK
     Dates: start: 20140706, end: 20140714
  21. TARDYFERON [Concomitant]
     Active Substance: FERROUS SULFATE\FOLIC ACID
     Dosage: UNK
     Dates: start: 20140706
  22. PHOCYTAN [Concomitant]
     Active Substance: .ALPHA.-GLUCOSE-1-PHOSPHATE
     Dosage: UNK
     Dates: start: 20140615, end: 20140622
  23. AUGMENTIN [Concomitant]
     Active Substance: AMOXICILLIN\CLAVULANATE POTASSIUM
     Dosage: UNK
     Dates: start: 20140626, end: 20140628
  24. VANCOMYCINE [Concomitant]
     Active Substance: VANCOMYCIN
     Dosage: UNK
     Dates: start: 20140629, end: 20140703
  25. ORBENINE [Suspect]
     Active Substance: CLOXACILLIN SODIUM
     Dosage: UNK
     Route: 065
     Dates: start: 20140702
  26. PARACETAMOL [Suspect]
     Active Substance: ACETAMINOPHEN
     Dosage: UNK
     Route: 065
     Dates: start: 20140615, end: 20140714
  27. VITAMIN B1 AND B6 [Concomitant]
     Active Substance: PYRIDOXINE HYDROCHLORIDE\THIAMINE HYDROCHLORIDE
     Dosage: UNK
     Dates: start: 20140615
  28. ALVITYL [Concomitant]
     Dosage: UNK
     Dates: start: 20140629

REACTIONS (1)
  - Purpura [Recovered/Resolved]

NARRATIVE: CASE EVENT DATE: 20140709
